FAERS Safety Report 7101843-6 (Version None)
Quarter: 2010Q4

REPORT INFORMATION
  Report Type: 
  Country: None (occurrence: None)
  Receive Date: 20101115
  Receipt Date: 20101110
  Transmission Date: 20110411
  Serious: Yes (Hospitalization)
  Sender: FDA-Public Use
  Company Number: EC-B.I. PHARMACEUTICALS,INC./RIDGEFIELD-2010-RA-00407RA

PATIENT

DRUGS (1)
  1. DABIGATRAN ETEXILATE [Suspect]
     Route: 048

REACTIONS (1)
  - EMBOLISM ARTERIAL [None]
